FAERS Safety Report 4851303-8 (Version None)
Quarter: 2005Q4

REPORT INFORMATION
  Report Type: 
  Country: None (occurrence: None)
  Receive Date: 20051208
  Receipt Date: 20051121
  Transmission Date: 20060501
  Serious: Yes (Hospitalization, Other)
  Sender: FDA-Public Use
  Company Number: WAES 0211USA01959

PATIENT
  Age: 70 Year
  Sex: Male
  Weight: 68.9467 kg

DRUGS (6)
  1. COZAAR [Suspect]
     Indication: HYPERTENSION
     Dosage: 50 MG/DAILY/PO
     Route: 048
     Dates: start: 20011201, end: 20041223
  2. BASEN [Concomitant]
  3. GLIMICRON [Concomitant]
  4. KALIMATE [Concomitant]
  5. LIPITOR [Concomitant]
  6. LIPOVAS [Concomitant]

REACTIONS (11)
  - CONDITION AGGRAVATED [None]
  - CONVULSION [None]
  - DIABETES MELLITUS [None]
  - ELECTROCARDIOGRAM ST SEGMENT ELEVATION [None]
  - HEMIPLEGIA [None]
  - HYPERKALAEMIA [None]
  - HYPERLIPIDAEMIA [None]
  - NEPHRECTOMY [None]
  - POST PROCEDURAL COMPLICATION [None]
  - RENAL CELL CARCINOMA STAGE UNSPECIFIED [None]
  - TREATMENT NONCOMPLIANCE [None]
